FAERS Safety Report 16538049 (Version 1)
Quarter: 2019Q3

REPORT INFORMATION
  Report Type: Spontaneous
  Country: US (occurrence: US)
  Receive Date: 20190708
  Receipt Date: 20190708
  Transmission Date: 20191004
  Serious: No
  Sender: FDA-Public Use
  Company Number: US-SA-2019SA174480

PATIENT
  Age: 55 Year
  Sex: Female

DRUGS (1)
  1. LANTUS [Suspect]
     Active Substance: INSULIN GLARGINE
     Indication: TYPE 1 DIABETES MELLITUS
     Dosage: 22 UNITS OF LANTUS IN THE MORNING AND 10 UNITS OF LANTUS AT NIGHT, BID
     Route: 065
     Dates: start: 201903

REACTIONS (1)
  - Inappropriate schedule of product administration [Unknown]
